FAERS Safety Report 16394380 (Version 1)
Quarter: 2019Q2

REPORT INFORMATION
  Report Type: Spontaneous
  Country: US (occurrence: US)
  Receive Date: 20190430
  Receipt Date: 20190430
  Transmission Date: 20190711
  Serious: Yes (Hospitalization)
  Sender: FDA-Public Use
  Company Number: None

PATIENT
  Age: 57 Year
  Sex: Female

DRUGS (3)
  1. HCG [Suspect]
     Active Substance: GONADOTROPHIN, CHORIONIC
  2. FOLLISTIM [Concomitant]
     Active Substance: FOLLITROPIN
  3. CAPECITABINE. [Suspect]
     Active Substance: CAPECITABINE
     Indication: NEOPLASM MALIGNANT
     Route: 048
     Dates: end: 201904

REACTIONS (2)
  - Hypoaesthesia [None]
  - Skin warm [None]

NARRATIVE: CASE EVENT DATE: 20190108
